FAERS Safety Report 8463286-2 (Version None)
Quarter: 2012Q2

REPORT INFORMATION
  Report Type: 
  Country: None (occurrence: None)
  Receive Date: 20120625
  Receipt Date: 20120613
  Transmission Date: 20120825
  Serious: Yes (Hospitalization)
  Sender: FDA-Public Use
  Company Number: US-ACTELION-A-US2012-67359

PATIENT

DRUGS (1)
  1. TRACLEER [Suspect]
     Indication: PULMONARY ARTERIAL HYPERTENSION
     Dosage: UNK
     Route: 048
     Dates: start: 20040318

REACTIONS (5)
  - WEIGHT INCREASED [None]
  - PULMONARY OEDEMA [None]
  - PULMONARY ARTERIAL HYPERTENSION [None]
  - CONDITION AGGRAVATED [None]
  - DYSPNOEA [None]
